FAERS Safety Report 8463262-X (Version None)
Quarter: 2012Q2

REPORT INFORMATION
  Report Type: 
  Country: None (occurrence: None)
  Receive Date: 20120625
  Receipt Date: 20120614
  Transmission Date: 20120825
  Serious: Yes (Other)
  Sender: FDA-Public Use
  Company Number: JP-BRISTOL-MYERS SQUIBB COMPANY-16656209

PATIENT
  Age: 49 Year
  Sex: Female
  Weight: 45 kg

DRUGS (7)
  1. ABILIFY [Suspect]
     Indication: SCHIZOPHRENIA
     Dosage: 30MR-16AR,19-23MY 12MG/DY 17AR-10MY 24D 18MG/DY 11:15MY  24MG/DY 16:18MY 30MG 24:28MY 6MG
     Route: 048
     Dates: start: 20120323, end: 20120528
  2. FLUNITRAZEPAM [Concomitant]
     Dosage: TABS
     Dates: start: 20120511
  3. TRIALAM [Concomitant]
     Dosage: TABS
     Dates: start: 20120321
  4. CLONAZEPAM [Concomitant]
     Dates: start: 20120321
  5. BIPERIDEN HYDROCHLORIDE TAB [Concomitant]
     Dates: start: 20120331, end: 20120506
  6. PROMAZINE HYDROCHLORIDE [Concomitant]
     Dosage: TABS
     Dates: start: 20120321
  7. SENNOSIDE [Concomitant]
     Dates: start: 20120322

REACTIONS (10)
  - PSYCHIATRIC SYMPTOM [None]
  - PAIN [None]
  - POSTURE ABNORMAL [None]
  - BLOOD CREATINE PHOSPHOKINASE INCREASED [None]
  - ASPARTATE AMINOTRANSFERASE INCREASED [None]
  - NEUROLEPTIC MALIGNANT SYNDROME [None]
  - PYREXIA [None]
  - ALANINE AMINOTRANSFERASE INCREASED [None]
  - BLOOD LACTATE DEHYDROGENASE INCREASED [None]
  - SALIVARY HYPERSECRETION [None]
